FAERS Safety Report 6585123-3 (Version None)
Quarter: 2010Q1

REPORT INFORMATION
  Report Type: 
  Country: None (occurrence: None)
  Receive Date: 20100217
  Receipt Date: 20100205
  Transmission Date: 20100710
  Serious: Yes (Other)
  Sender: FDA-Public Use
  Company Number: JP-PFIZER INC-2010020069

PATIENT
  Sex: Male
  Weight: 61 kg

DRUGS (2)
  1. ZOLOFT [Suspect]
     Indication: SCHIZOPHRENIA
     Dosage: 50 MG/DAY
     Route: 048
     Dates: start: 20090701
  2. ABILIFY [Concomitant]
     Route: 048
     Dates: start: 20070101

REACTIONS (1)
  - BLOOD CREATINE PHOSPHOKINASE INCREASED [None]
